FAERS Safety Report 4831463-5 (Version None)
Quarter: 2005Q4

REPORT INFORMATION
  Report Type: 
  Country: None (occurrence: None)
  Receive Date: 20051116
  Receipt Date: 20051111
  Transmission Date: 20060501
  Serious: Yes (Hospitalization)
  Sender: FDA-Public Use
  Company Number: A001-412-3893

PATIENT
  Age: 51 Year
  Sex: Female
  Weight: 80.9 kg

DRUGS (1)
  1. DONEPEZIL HCL [Suspect]
     Indication: COGNITIVE DISORDER
     Dosage: 5 MG, 1 IN 1 D, ORAL
     Route: 048
     Dates: start: 20050831, end: 20051013

REACTIONS (1)
  - VAGINAL HAEMORRHAGE [None]
